FAERS Safety Report 4979590-6 (Version None)
Quarter: 2006Q2

REPORT INFORMATION
  Report Type: 
  Country: None (occurrence: None)
  Receive Date: 20060418
  Receipt Date: 20060329
  Transmission Date: 20061013
  Serious: Yes (Hospitalization)
  Sender: FDA-Public Use
  Company Number: CA_050107616

PATIENT
  Age: 73 Year
  Sex: Female
  Weight: 63.2 kg

DRUGS (7)
  1. FORTEO [Suspect]
     Indication: OSTEOPOROSIS
     Dosage: 20 UG, DAILY (1/D
     Dates: start: 20041119
  2. DOCUSATE SODIUM (DOCUSATE SODIUM) [Concomitant]
  3. ATENOLOL [Concomitant]
  4. VITAMIN E [Concomitant]
  5. HALIBUT-LIVER OIL [Concomitant]
  6. GARLIC [Concomitant]
  7. FORTEO [Concomitant]

REACTIONS (6)
  - DRUG DOSE OMISSION [None]
  - FALL [None]
  - MULTIPLE FRACTURES [None]
  - PAIN IN EXTREMITY [None]
  - SUBCUTANEOUS NODULE [None]
  - TIBIA FRACTURE [None]
